FAERS Safety Report 17840417 (Version 1)
Quarter: 2020Q2

REPORT INFORMATION
  Report Type: Report from Study
  Country: None (occurrence: US)
  Receive Date: 20200529
  Receipt Date: 20200529
  Transmission Date: 20200714
  Serious: No
  Sender: FDA-Public Use
  Company Number: US-BIOVITRUM-2019US1873

PATIENT
  Sex: Male

DRUGS (3)
  1. ZANTAC [Concomitant]
     Active Substance: RANITIDINE HYDROCHLORIDE
  2. KINERET [Suspect]
     Active Substance: ANAKINRA
     Indication: STILL^S DISEASE
     Route: 058
  3. NAPROXEN. [Concomitant]
     Active Substance: NAPROXEN
     Dosage: ONE AND A HALF

REACTIONS (2)
  - Depression [Unknown]
  - Off label use [Not Recovered/Not Resolved]
